FAERS Safety Report 8040810-5 (Version None)
Quarter: 2012Q1

REPORT INFORMATION
  Report Type: 
  Country: None (occurrence: None)
  Receive Date: 20120112
  Receipt Date: 20120109
  Transmission Date: 20120608
  Serious: No
  Sender: FDA-Public Use
  Company Number: US-AMGEN-USASP2011057635

PATIENT
  Age: 56 Year
  Sex: Female

DRUGS (3)
  1. ENBREL [Suspect]
     Indication: RHEUMATOID ARTHRITIS
     Dosage: 50 MG, QWK
     Dates: start: 20110524
  2. METHOTREXATE [Suspect]
     Dosage: UNK MG, UNK
     Dates: start: 20110101
  3. ARAVA [Concomitant]
     Dosage: UNK MG, UNK
     Dates: start: 20111010

REACTIONS (1)
  - OROPHARYNGEAL BLISTERING [None]
